FAERS Safety Report 16533102 (Version 1)
Quarter: 2019Q3

REPORT INFORMATION
  Report Type: Spontaneous
  Country: JP (occurrence: JP)
  Receive Date: 20190705
  Receipt Date: 20190705
  Transmission Date: 20191004
  Serious: Yes (Other)
  Sender: FDA-Public Use
  Company Number: JP-JNJFOC-20140318681

PATIENT

DRUGS (1)
  1. GALANTAMINE HBR ORODISPERSIBLE TABLET [Suspect]
     Active Substance: GALANTAMINE HYDROBROMIDE
     Indication: PRODUCT USED FOR UNKNOWN INDICATION
     Route: 048

REACTIONS (16)
  - Decreased appetite [Unknown]
  - Salivary hypersecretion [Unknown]
  - Bradycardia [Unknown]
  - Blood pressure increased [Unknown]
  - Somnolence [Unknown]
  - Vomiting [Unknown]
  - Dizziness [Unknown]
  - Thirst [Unknown]
  - Discomfort [Unknown]
  - Nausea [Unknown]
  - Headache [Unknown]
  - Hyperkinesia [Unknown]
  - Asthma [Unknown]
  - Diarrhoea [Unknown]
  - Oedema [Unknown]
  - Insomnia [Unknown]
